FAERS Safety Report 25686048 (Version 3)
Quarter: 2025Q4

REPORT INFORMATION
  Report Type: Spontaneous
  Country: BR (occurrence: BR)
  Receive Date: 20250815
  Receipt Date: 20251021
  Transmission Date: 20260118
  Serious: Yes (Hospitalization, Other)
  Sender: ROCHE
  Company Number: BR-ROCHE-10000355878

PATIENT
  Age: 35 Year
  Sex: Female
  Weight: 52 kg

DRUGS (1)
  1. RISDIPLAM [Suspect]
     Active Substance: RISDIPLAM
     Indication: Spinal muscular atrophy
     Route: 048
     Dates: start: 2021, end: 2022

REACTIONS (15)
  - Maternal exposure before pregnancy [Unknown]
  - Motor dysfunction [Unknown]
  - Respiratory disorder [Unknown]
  - Polyhydramnios [Unknown]
  - Diabetes mellitus inadequate control [Unknown]
  - Post procedural discomfort [Unknown]
  - Chest pain [Unknown]
  - Dysphonia [Unknown]
  - Dysphagia [Recovered/Resolved]
  - Pneumonia [Unknown]
  - Muscular weakness [Unknown]
  - Weight decreased [Unknown]
  - Pain [Recovering/Resolving]
  - Disease progression [Unknown]
  - Maternal exposure during pregnancy [Unknown]
